FAERS Safety Report 4899424-8 (Version None)
Quarter: 2006Q1

REPORT INFORMATION
  Report Type: 
  Country: None (occurrence: None)
  Receive Date: 20060131
  Receipt Date: 20060114
  Transmission Date: 20060701
  Serious: Yes (Death)
  Sender: FDA-Public Use
  Company Number: DSA_60630_2006

PATIENT
  Age: 15 Year
  Sex: Male
  Weight: 66.9963 kg

DRUGS (4)
  1. DIHYDROERGOTAMINE (DIHYDERGOT) [Suspect]
     Indication: ORTHOSTATIC HYPOTENSION
     Dosage: 1 MG TID PO
     Route: 048
     Dates: start: 20051219, end: 20051219
  2. LYSOZYME HYDROCHLORIDE (NEUZYM) [Concomitant]
  3. DOMPERIDONE (NAUZELIN) [Concomitant]
  4. LOXOPROFEN SODIUM (LOXONIN) [Concomitant]

REACTIONS (2)
  - CEREBRAL HAEMORRHAGE [None]
  - SUBARACHNOID HAEMORRHAGE [None]
